FAERS Safety Report 6619130-9 (Version None)
Quarter: 2010Q1

REPORT INFORMATION
  Report Type: 
  Country: None (occurrence: None)
  Receive Date: 20100305
  Receipt Date: 20100305
  Transmission Date: 20100710
  Serious: Yes (Hospitalization)
  Sender: FDA-Public Use
  Company Number: None

PATIENT
  Sex: Male
  Weight: 21.8 kg

DRUGS (8)
  1. CARBOPLATIN [Suspect]
     Dosage: 1228 MG
  2. CYCLOPHOSPHAMIDE [Suspect]
     Dosage: 4620 MG
  3. ETOPOSIDE [Suspect]
     Dosage: 1347 MG
  4. G-CSF (FILGRASTIM, AMGEN) [Suspect]
     Dosage: 180 MCG
  5. MELPHALAN HYDROCHLORIDE [Suspect]
     Dosage: 147 MG
  6. MESNA [Suspect]
     Dosage: 2760 MG
  7. THIOTEPA [Suspect]
     Dosage: 690 MG
  8. ISOTRETINOIN [Concomitant]

REACTIONS (9)
  - CHILLS [None]
  - DYSPHAGIA [None]
  - EATING DISORDER [None]
  - GASTRITIS HAEMORRHAGIC [None]
  - OEDEMA [None]
  - OESOPHAGEAL STENOSIS [None]
  - OESOPHAGITIS [None]
  - PYREXIA [None]
  - WEIGHT INCREASED [None]
